FAERS Safety Report 25729771 (Version 1)
Quarter: 2025Q3

REPORT INFORMATION
  Report Type: Spontaneous
  Country: JP (occurrence: JP)
  Receive Date: 20250827
  Receipt Date: 20250827
  Transmission Date: 20251021
  Serious: Yes (Hospitalization, Other)
  Sender: TAKEDA
  Company Number: JP-TAKEDA-2025TUS075180

PATIENT
  Age: 7 Decade
  Sex: Male

DRUGS (5)
  1. LIALDA [Suspect]
     Active Substance: MESALAMINE
     Indication: Colitis ulcerative
  2. BUDESONIDE [Concomitant]
     Active Substance: BUDESONIDE
     Indication: Colitis ulcerative
  3. CAROTEGRAST METHYL [Concomitant]
     Active Substance: CAROTEGRAST METHYL
     Indication: Colitis ulcerative
  4. PREDNISOLONE [Concomitant]
     Active Substance: PREDNISOLONE
     Indication: Colitis ulcerative
     Dosage: 40 MILLIGRAM, QD
  5. UPADACITINIB HEMIHYDRATE [Concomitant]
     Active Substance: UPADACITINIB HEMIHYDRATE
     Indication: Colitis ulcerative

REACTIONS (3)
  - Cytomegalovirus infection [Recovering/Resolving]
  - Colitis ulcerative [Unknown]
  - Drug ineffective [Unknown]
